FAERS Safety Report 18137030 (Version 2)
Quarter: 2020Q3

REPORT INFORMATION
  Report Type: Report from Study
  Country: US (occurrence: US)
  Receive Date: 20200811
  Receipt Date: 20200824
  Transmission Date: 20201103
  Serious: Yes (Hospitalization)
  Sender: FDA-Public Use
  Company Number: US-ACTELION-A-NJ2019-199343

PATIENT
  Sex: Female
  Weight: 47.62 kg

DRUGS (4)
  1. VELETRI [Suspect]
     Active Substance: EPOPROSTENOL
     Indication: PULMONARY ARTERIAL HYPERTENSION
     Dosage: 72 NG/KG, PER MIN
     Route: 042
  2. OPSUMIT [Suspect]
     Active Substance: MACITENTAN
     Indication: PULMONARY ARTERIAL HYPERTENSION
     Dosage: 10 MG, QD
     Route: 048
  3. ADEMPAS [Concomitant]
     Active Substance: RIOCIGUAT
  4. NIFEDIPINE. [Concomitant]
     Active Substance: NIFEDIPINE

REACTIONS (14)
  - Dyspnoea [Unknown]
  - Nerve compression [Unknown]
  - Ascites [Unknown]
  - Dyspnoea at rest [Unknown]
  - Pain in extremity [Unknown]
  - Peripheral swelling [Unknown]
  - Neck pain [Unknown]
  - Spinal pain [Unknown]
  - Fatigue [Unknown]
  - Catheter management [Unknown]
  - Dyspnoea exertional [Unknown]
  - Diarrhoea [Unknown]
  - Arthralgia [Unknown]
  - Malaise [Unknown]
